FAERS Safety Report 20432467 (Version 2)
Quarter: 2022Q1

REPORT INFORMATION
  Report Type: Spontaneous
  Country: DE (occurrence: DE)
  Receive Date: 20220204
  Receipt Date: 20220210
  Transmission Date: 20220423
  Serious: Yes (Hospitalization)
  Sender: FDA-Public Use
  Company Number: DE-TEVA-2022-DE-2003014

PATIENT
  Age: 8 Year
  Sex: Male

DRUGS (1)
  1. ALBUTEROL [Suspect]
     Active Substance: ALBUTEROL
     Indication: Bronchitis
     Dosage: 2X APPLICATION ON FRIDAY, 3X DAILY ON SATURDAY, SUNDAY AND MONDAY AND 1X ON TUESDAY. 5 DROPS EACH DI
     Route: 065
     Dates: start: 20220121

REACTIONS (3)
  - Muscle twitching [Not Recovered/Not Resolved]
  - Fatigue [Unknown]
  - Chills [Unknown]

NARRATIVE: CASE EVENT DATE: 20220125
